FAERS Safety Report 5243278-7 (Version None)
Quarter: 2007Q1

REPORT INFORMATION
  Report Type: 
  Country: None (occurrence: None)
  Receive Date: 20070221
  Receipt Date: 20070209
  Transmission Date: 20070707
  Serious: Yes (Other)
  Sender: FDA-Public Use
  Company Number: US-PFIZER INC-2007011723

PATIENT
  Sex: Male

DRUGS (4)
  1. LYRICA [Suspect]
     Indication: NEURALGIA
  2. VIAGRA [Suspect]
     Indication: ERECTILE DYSFUNCTION
  3. LISINOPRIL W/HYDROCHLOROTHIAZIDE [Concomitant]
  4. LIPITOR [Concomitant]

REACTIONS (2)
  - NEURALGIA [None]
  - THYROID DISORDER [None]
